FAERS Safety Report 16754202 (Version 1)
Quarter: 2019Q3

REPORT INFORMATION
  Report Type: Spontaneous
  Country: US (occurrence: US)
  Receive Date: 20190710
  Receipt Date: 20190710
  Transmission Date: 20191005
  Serious: Yes (Hospitalization)
  Sender: FDA-Public Use
  Company Number: None

PATIENT
  Age: 59 Year
  Sex: Female

DRUGS (16)
  1. DIOVAN [Concomitant]
     Active Substance: VALSARTAN
  2. IRBESARTAN. [Concomitant]
     Active Substance: IRBESARTAN
  3. MODAFINIL. [Concomitant]
     Active Substance: MODAFINIL
  4. OLMESA MEDOX [Concomitant]
  5. VIT D [Concomitant]
     Active Substance: VITAMIN D NOS
  6. HYDROCHLOROTHIAZIDE. [Concomitant]
     Active Substance: HYDROCHLOROTHIAZIDE
  7. VALSARTAN. [Concomitant]
     Active Substance: VALSARTAN
  8. MYCOPHENOLATE 500MG [Suspect]
     Active Substance: MYCOPHENOLIC ACID
     Indication: SJOGREN^S SYNDROME
     Route: 048
     Dates: start: 20150603
  9. DICLOFENAC [Concomitant]
     Active Substance: DICLOFENAC
  10. RITUXAN [Concomitant]
     Active Substance: RITUXIMAB
  11. ALLEGRA-D [Concomitant]
     Active Substance: FEXOFENADINE\PSEUDOEPHEDRINE
  12. PRAVASTATIN. [Concomitant]
     Active Substance: PRAVASTATIN
  13. ADDERALL [Concomitant]
     Active Substance: AMPHETAMINE ASPARTATE\AMPHETAMINE SULFATE\DEXTROAMPHETAMINE SACCHARATE\DEXTROAMPHETAMINE SULFATE
  14. ASPIRIN. [Concomitant]
     Active Substance: ASPIRIN
  15. CLOPIDOGREL [Concomitant]
     Active Substance: CLOPIDOGREL BISULFATE
  16. METOPROLOL. [Concomitant]
     Active Substance: METOPROLOL

REACTIONS (3)
  - Dyspnoea [None]
  - Muscular weakness [None]
  - Arterial occlusive disease [None]
